FAERS Safety Report 12298770 (Version 2)
Quarter: 2016Q2

REPORT INFORMATION
  Report Type: Spontaneous
  Country: JP (occurrence: JP)
  Receive Date: 20160425
  Receipt Date: 20160602
  Transmission Date: 20160815
  Serious: Yes (Hospitalization)
  Sender: FDA-Public Use
  Company Number: JP-ROCHE-1744991

PATIENT
  Age: 34 Year
  Sex: Male

DRUGS (3)
  1. CELLCEPT [Suspect]
     Active Substance: MYCOPHENOLATE MOFETIL\MYCOPHENOLATE MOFETIL HYDROCHLORIDE
     Indication: RENAL TRANSPLANT
     Dosage: THE FRACTIONATION DOSE FREQUENCY IS UNCERTAIN. ?DOSE INTERVAL UNCERTAINTY
     Route: 048
  2. EVEROLIMUS [Concomitant]
     Active Substance: EVEROLIMUS
     Dosage: THE FRACTIONATION DOSE FREQUENCY IS UNCERTAIN. ?DOSE INTERVAL UNCERTAINTY
     Route: 065
  3. TACROLIMUS HYDRATE [Concomitant]
     Active Substance: TACROLIMUS
     Dosage: THE FRACTIONATION DOSE FREQUENCY IS UNCERTAIN. ?DOSE INTERVAL UNCERTAINTY
     Route: 065

REACTIONS (6)
  - Pneumonia legionella [Recovered/Resolved]
  - Disseminated intravascular coagulation [Recovered/Resolved]
  - Rhabdomyolysis [Recovered/Resolved]
  - Hepatic function abnormal [Recovered/Resolved]
  - Central nervous system lesion [Recovered/Resolved]
  - Hyponatraemia [Recovered/Resolved]
